FAERS Safety Report 5869673-0 (Version None)
Quarter: 2008Q3

REPORT INFORMATION
  Report Type: 
  Country: None (occurrence: None)
  Receive Date: 20080904
  Receipt Date: 20080825
  Transmission Date: 20090109
  Serious: Yes (Hospitalization)
  Sender: FDA-Public Use
  Company Number: US-ELI_LILLY_AND_COMPANY-US200807004608

PATIENT
  Age: 78 Year
  Sex: Female
  Weight: 46.259 kg

DRUGS (1)
  1. FORTEO [Suspect]
     Indication: OSTEOPOROSIS
     Dosage: 20 UG, UNK
     Dates: start: 20080501

REACTIONS (4)
  - COMPRESSION FRACTURE [None]
  - LUMBAR SPINAL STENOSIS [None]
  - URINARY TRACT INFECTION [None]
  - URINE ODOUR ABNORMAL [None]
